FAERS Safety Report 4337401-6 (Version None)
Quarter: 2004Q2

REPORT INFORMATION
  Report Type: 
  Country: None (occurrence: None)
  Receive Date: 20040408
  Receipt Date: 20040326
  Transmission Date: 20050107
  Serious: Yes (Other)
  Sender: FDA-Public Use
  Company Number: 2004021671

PATIENT
  Age: 33 Year
  Sex: Female

DRUGS (3)
  1. NEURONTIN [Suspect]
     Indication: EPILEPSY
     Dates: start: 19970101
  2. CLONAZEPAM [Concomitant]
  3. DOTHIEPIN HYDROCHLORIDE [Concomitant]

REACTIONS (4)
  - CAESAREAN SECTION [None]
  - COMPLICATIONS OF MATERNAL EXPOSURE TO THERAPEUTIC DRUGS [None]
  - PREGNANCY [None]
  - PREMATURE BABY [None]
